FAERS Safety Report 5523668-5 (Version None)
Quarter: 2007Q4

REPORT INFORMATION
  Report Type: 
  Country: None (occurrence: None)
  Receive Date: 20071121
  Receipt Date: 20071119
  Transmission Date: 20080405
  Serious: Yes (Hospitalization)
  Sender: FDA-Public Use
  Company Number: US-ASTRAZENECA-2007UW24160

PATIENT
  Age: 80 Year
  Sex: Female
  Weight: 72.6 kg

DRUGS (4)
  1. NEXIUM [Suspect]
     Route: 048
     Dates: start: 20040101
  2. CARTIA XT [Concomitant]
  3. COUMADIN [Concomitant]
  4. VYTORIN [Concomitant]

REACTIONS (1)
  - ATRIAL FIBRILLATION [None]
